FAERS Safety Report 7902756-X (Version None)
Quarter: 2011Q4

REPORT INFORMATION
  Report Type: 
  Country: None (occurrence: None)
  Receive Date: 20111109
  Receipt Date: 20111027
  Transmission Date: 20120403
  Serious: Yes (Other)
  Sender: FDA-Public Use
  Company Number: US-BIOGENIDEC-2011BI041166

PATIENT
  Age: 1 Month
  Sex: Male

DRUGS (1)
  1. TYSABRI [Suspect]
     Route: 064
     Dates: start: 20080114, end: 20101210

REACTIONS (1)
  - NECK MASS [None]
